FAERS Safety Report 8879017 (Version 3)
Quarter: 2013Q1

REPORT INFORMATION
  Report Type: Spontaneous
  Country: US (occurrence: US)
  Receive Date: 20121026
  Receipt Date: 20130118
  Transmission Date: 20140127
  Serious: Yes (Hospitalization, Other)
  Sender: FDA-Public Use
  Company Number: US-TARO-2012P1061134

PATIENT
  Age: 68 Year
  Sex: Male
  Weight: 102.06 kg

DRUGS (10)
  1. FLUOROURACIL [Suspect]
     Route: 061
     Dates: start: 1986
  2. VICODIN 5/500 [Concomitant]
  3. FLEXERIL [Concomitant]
  4. IMIPRAMINE [Concomitant]
  5. VITAMIN D3 [Concomitant]
  6. VITAMIN C [Concomitant]
  7. MULTIVITAMIN [Concomitant]
  8. FISH OIL [Concomitant]
  9. TRILEPTAL (OXCARBAZEPINE) [Concomitant]
  10. DITROPAN (OXYBUTYNIN) [Concomitant]

REACTIONS (6)
  - Drug effect incomplete [Not Recovered/Not Resolved]
  - Prostate cancer [Recovered/Resolved]
  - Precancerous skin lesion [Unknown]
  - Scab [Unknown]
  - Trigeminal neuralgia [Not Recovered/Not Resolved]
  - Incontinence [Not Recovered/Not Resolved]
